APPROVED DRUG PRODUCT: BORTEZOMIB
Active Ingredient: BORTEZOMIB
Strength: 3.5MG/VIAL
Dosage Form/Route: INJECTABLE;INTRAVENOUS, SUBCUTANEOUS
Application: A205160 | Product #001
Applicant: PHARMOBEDIENT CONSULTING LLC
Approved: Oct 31, 2022 | RLD: No | RS: No | Type: DISCN